FAERS Safety Report 19273834 (Version 1)
Quarter: 2021Q2

REPORT INFORMATION
  Report Type: Spontaneous
  Country: US (occurrence: US)
  Receive Date: 20210518
  Receipt Date: 20210518
  Transmission Date: 20210717
  Serious: Yes (Death)
  Sender: FDA-Public Use
  Company Number: None

PATIENT
  Sex: Male

DRUGS (9)
  1. MAGNESIUM?OX, METOLAZONE, ONE TOUCH [Concomitant]
  2. PANTOPRAZOLE, POT CHLORIDE, SPIRPNOLACT [Concomitant]
  3. TAMSULISON [Concomitant]
  4. VYNDAQEL [Suspect]
     Active Substance: TAFAMIDIS MEGLUMINE
     Indication: AMYLOIDOSIS
     Route: 048
     Dates: start: 20200723, end: 20210505
  5. HYDRALAZINE, LATANOPROST, LEVOTHYROXIN [Concomitant]
  6. ALLOPURINOL, ATORVASTATIN, CARVEDILOL [Concomitant]
  7. ELQUIS, FUROSEMIDE, GABAPENTIN, [Concomitant]
  8. CLOPIDOGREL, COLCHICINE, DOCUSATE [Concomitant]
  9. VITAMIN D3 [Concomitant]
     Active Substance: CHOLECALCIFEROL

REACTIONS (1)
  - Death [None]
